FAERS Safety Report 6092356-1 (Version None)
Quarter: 2009Q1

REPORT INFORMATION
  Report Type: 
  Country: None (occurrence: None)
  Receive Date: 20090223
  Receipt Date: 20090223
  Transmission Date: 20090719
  Serious: Yes (Hospitalization)
  Sender: FDA-Public Use
  Company Number: None

PATIENT
  Sex: Male
  Weight: 91.173 kg

DRUGS (2)
  1. BEVACIZUMAB 100MG/4ML, GENENTECH [Suspect]
     Indication: PANCREATIC CARCINOMA METASTATIC
     Dosage: 15MG/KG, 1370 MG EVERY 3 WEEKS IV
     Route: 042
     Dates: end: 20081204
  2. ERLOTINIB 150MG TABLETS, GENENTECH [Suspect]
     Indication: PANCREATIC CARCINOMA METASTATIC
     Dosage: 150MG DAILY ORALLY
     Route: 048
     Dates: start: 20081204, end: 20081212

REACTIONS (4)
  - DEEP VEIN THROMBOSIS [None]
  - DISEASE PROGRESSION [None]
  - NAUSEA [None]
  - VOMITING [None]
